FAERS Safety Report 9858685 (Version 3)
Quarter: 2014Q1

REPORT INFORMATION
  Report Type: Spontaneous
  Country: US (occurrence: None)
  Receive Date: 20140129
  Receipt Date: 20140221
  Transmission Date: 20141002
  Serious: Yes (Other)
  Sender: FDA-Public Use
  Company Number: AUR-APL-2014-00652

PATIENT
  Age: 86 Year
  Sex: Male

DRUGS (9)
  1. CLOPIDOGREL [Suspect]
     Indication: CORONARY ARTERIAL STENT INSERTION
     Dosage: LOADING DOSE (600 MG), UNKNOWN
  2. ATENOLOL (ATENOLOL) [Concomitant]
  3. AMLODIPINE (AMLODIPINE) [Concomitant]
  4. ASPIRIN (ACETYLSALICYLIC ACID) [Concomitant]
  5. UNFRACTIONATED HEPARIN (HEPARIN) [Concomitant]
  6. EPTIFIBATIDE (EPTIFIBATIDE) [Concomitant]
  7. FENTANYL (FENTANYL) [Concomitant]
  8. MIDAZOLAM (MIDAZOLAM) [Concomitant]
  9. NITROGLYCERIN (GLYCERYL TRINITRATE) SPRAY [Concomitant]

REACTIONS (1)
  - Neutropenia [None]
